FAERS Safety Report 24465013 (Version 1)
Quarter: 2024Q4

REPORT INFORMATION
  Report Type: Spontaneous
  Country: US (occurrence: US)
  Receive Date: 20241018
  Receipt Date: 20241018
  Transmission Date: 20250114
  Serious: No
  Sender: ROCHE
  Company Number: US-ROCHE-3521213

PATIENT
  Sex: Male
  Weight: 100.24 kg

DRUGS (1)
  1. XOLAIR [Suspect]
     Active Substance: OMALIZUMAB
     Indication: Urticaria
     Dosage: 150 MG INJECTION IN EACH LEG, LAST DOSE RECEIVED ON 04/MAR/2024.
     Route: 058
     Dates: start: 202309

REACTIONS (3)
  - Ear congestion [Recovering/Resolving]
  - Nasopharyngitis [Recovering/Resolving]
  - Hypoacusis [Not Recovered/Not Resolved]

NARRATIVE: CASE EVENT DATE: 20240222
